FAERS Safety Report 8517673-4 (Version None)
Quarter: 2012Q3

REPORT INFORMATION
  Report Type: 
  Country: None (occurrence: None)
  Receive Date: 20120718
  Receipt Date: 20120711
  Transmission Date: 20120928
  Serious: Yes (Other)
  Sender: FDA-Public Use
  Company Number: US-CELGENEUS-163-21880-12071471

PATIENT
  Sex: Male
  Weight: 87 kg

DRUGS (2)
  1. REVLIMID [Suspect]
     Indication: MULTIPLE MYELOMA
     Dosage: 5 MILLIGRAM
     Route: 048
     Dates: start: 20120413
  2. DEXAMETHASONE [Concomitant]
     Route: 065

REACTIONS (3)
  - NEUROPATHY PERIPHERAL [None]
  - DISORIENTATION [None]
  - VISUAL IMPAIRMENT [None]
